FAERS Safety Report 26088194 (Version 1)
Quarter: 2025Q4

REPORT INFORMATION
  Report Type: Spontaneous
  Country: CN (occurrence: CN)
  Receive Date: 20251125
  Receipt Date: 20251125
  Transmission Date: 20260117
  Serious: Yes (Other)
  Sender: MERCK SHARP & DOHME LLC
  Company Number: CN-009507513-2353285

PATIENT
  Age: 50 Year
  Sex: Male

DRUGS (1)
  1. STEGLATRO [Suspect]
     Active Substance: ERTUGLIFLOZIN PIDOLATE
     Indication: Blood glucose abnormal
     Dosage: 5 MG, QD
     Route: 048
     Dates: start: 20251103, end: 20251106

REACTIONS (1)
  - Diabetic ketosis [Recovered/Resolved]

NARRATIVE: CASE EVENT DATE: 20251105
